FAERS Safety Report 11325040 (Version 17)
Quarter: 2019Q2

REPORT INFORMATION
  Report Type: Report from Study
  Country: CA (occurrence: CA)
  Receive Date: 20150730
  Receipt Date: 20190425
  Transmission Date: 20190711
  Serious: Yes (Other)
  Sender: FDA-Public Use
  Company Number: PHHY2015CA090208

PATIENT
  Age: 64 Year
  Sex: Female

DRUGS (5)
  1. SANDOSTATIN LAR DEPOT [Suspect]
     Active Substance: OCTREOTIDE ACETATE
     Indication: ACROMEGALY
     Dosage: 20 MG, QMO (ONCE A MONTH)
     Route: 030
     Dates: start: 20150519
  2. LIPITOR [Concomitant]
     Active Substance: ATORVASTATIN CALCIUM
     Indication: BLOOD CHOLESTEROL INCREASED
     Dosage: 5 MG, UNK
     Route: 065
  3. PERCOCET [Concomitant]
     Active Substance: ACETAMINOPHEN\OXYCODONE HYDROCHLORIDE
     Indication: PRODUCT USED FOR UNKNOWN INDICATION
     Route: 065
  4. NAPROXEN. [Concomitant]
     Active Substance: NAPROXEN
     Indication: PRODUCT USED FOR UNKNOWN INDICATION
     Dosage: UNK UNK, PRN
     Route: 065
     Dates: start: 201712
  5. CYMBALTA [Concomitant]
     Active Substance: DULOXETINE HYDROCHLORIDE
     Indication: PRODUCT USED FOR UNKNOWN INDICATION
     Dosage: UNK UNK, PRN
     Route: 065
     Dates: start: 20171223

REACTIONS (34)
  - Influenza like illness [Unknown]
  - Muscle spasms [Unknown]
  - Chills [Unknown]
  - Sinusitis [Recovered/Resolved]
  - Hyperhidrosis [Recovered/Resolved]
  - Vomiting [Unknown]
  - Blood pressure increased [Unknown]
  - Pain [Unknown]
  - Diarrhoea [Recovering/Resolving]
  - Pituitary tumour [Unknown]
  - Body temperature decreased [Unknown]
  - Breast mass [Unknown]
  - Myalgia [Recovering/Resolving]
  - Influenza [Unknown]
  - Abdominal pain upper [Unknown]
  - Blood pressure decreased [Unknown]
  - Fatigue [Recovering/Resolving]
  - Nausea [Recovered/Resolved]
  - Haemorrhoids [Unknown]
  - Urinary tract infection [Unknown]
  - Blood urine present [Not Recovered/Not Resolved]
  - Haemoglobin decreased [Unknown]
  - Ear infection [Recovered/Resolved]
  - Alopecia [Unknown]
  - Dizziness [Recovered/Resolved]
  - Back pain [Unknown]
  - Flatulence [Unknown]
  - Nausea [Unknown]
  - Abdominal pain upper [Recovered/Resolved]
  - Dysphagia [Unknown]
  - Discomfort [Unknown]
  - Blood pressure systolic increased [Unknown]
  - Arthralgia [Unknown]
  - Constipation [Unknown]

NARRATIVE: CASE EVENT DATE: 2015
